FAERS Safety Report 8071396-7 (Version None)
Quarter: 2012Q1

REPORT INFORMATION
  Report Type: 
  Country: None (occurrence: None)
  Receive Date: 20120125
  Receipt Date: 20120119
  Transmission Date: 20120608
  Serious: Yes (Other)
  Sender: FDA-Public Use
  Company Number: US-AMGEN-USASP2011033431

PATIENT
  Age: 68 Year
  Sex: Female

DRUGS (13)
  1. TOPROL-XL [Concomitant]
     Dosage: 50 MG, QD
     Route: 048
  2. ACETAMINOPHEN [Concomitant]
     Dosage: 500 MG, TID
  3. FISH OIL [Concomitant]
     Dosage: UNK UNK, QD
     Route: 048
  4. FOLIC ACID [Concomitant]
     Dosage: 1 MG, QD
     Route: 048
  5. LOSARTAN POTASSIUM AND HYDROCHLOROTHIAZIDE [Concomitant]
     Dosage: UNK UNK, QD
     Route: 048
  6. FIBER [Concomitant]
     Dosage: UNK UNK, QD
     Route: 048
  7. LEVOTHYROXINE SODIUM [Concomitant]
     Dosage: 150 MUG, QD
     Route: 048
  8. MULTI-VITAMINS [Concomitant]
     Dosage: UNK UNK, QD
     Route: 048
  9. ENBREL [Suspect]
     Dosage: 50 MG, QWK
     Route: 058
     Dates: start: 19990101, end: 20111201
  10. CALCIUM CARBONATE [Concomitant]
     Dosage: 600 MG, QD
     Route: 048
  11. VYTORIN [Concomitant]
     Dosage: UNK UNK, QD
     Route: 048
  12. ENBREL [Suspect]
     Indication: RHEUMATOID ARTHRITIS
     Dosage: 50 MG, QWK
     Dates: start: 19990101, end: 20111201
  13. METHOTREXATE [Concomitant]
     Dosage: UNK

REACTIONS (10)
  - DRY MOUTH [None]
  - DRY EYE [None]
  - JOINT SURGERY [None]
  - HYPOTHYROIDISM [None]
  - BREAST CANCER STAGE I [None]
  - APPENDICECTOMY [None]
  - GASTROOESOPHAGEAL REFLUX DISEASE [None]
  - RHEUMATOID ARTHRITIS [None]
  - SJOGREN'S SYNDROME [None]
  - HYPERLIPIDAEMIA [None]
